FAERS Safety Report 9456885 (Version 1)
Quarter: 2013Q3

REPORT INFORMATION
  Report Type: Spontaneous
  Country: US (occurrence: None)
  Receive Date: 20130809
  Receipt Date: 20130809
  Transmission Date: 20140515
  Serious: Yes (Other)
  Sender: FDA-Public Use
  Company Number: JPI-P-033991

PATIENT
  Age: 19 Year
  Sex: Male

DRUGS (1)
  1. XYREM (500 MILLIGRAM/MILLILITERS, SOLUTION) (SODIUM OXYBATE) [Suspect]
     Indication: CATAPLEXY
     Dosage: 1.5 GM (0.75 GM 2 IN 1 D)
     Route: 048
     Dates: start: 20030819

REACTIONS (1)
  - Hernia repair [None]
